FAERS Safety Report 9530899 (Version 1)
Quarter: 2013Q2

REPORT INFORMATION
  Report Type: Spontaneous
  Country: US (occurrence: None)
  Receive Date: 20130416
  Receipt Date: 20130416
  Transmission Date: 20140414
  Serious: Yes (Hospitalization, Other)
  Sender: FDA-Public Use
  Company Number: 2012BAX023828

PATIENT
  Age: 6 Month
  Sex: Male
  Weight: 8.3 kg

DRUGS (3)
  1. ADVATE [Suspect]
     Indication: HAEMOPHILIA
     Dosage: 269 IU, 1 IN 1 D
     Route: 040
     Dates: start: 20120830, end: 20120902
  2. FER-IRON 75 [Concomitant]
  3. RANITIDINE [Concomitant]

REACTIONS (2)
  - Factor VIII inhibition [None]
  - Joint swelling [None]
